FAERS Safety Report 6740425-2 (Version None)
Quarter: 2010Q2

REPORT INFORMATION
  Report Type: 
  Country: None (occurrence: None)
  Receive Date: 20100525
  Receipt Date: 20100517
  Transmission Date: 20101027
  Serious: Yes (Hospitalization, Other)
  Sender: FDA-Public Use
  Company Number: PHHO2010US07459

PATIENT
  Age: 65 Year
  Sex: Female
  Weight: 116.8 kg

DRUGS (8)
  1. ZOLEDRONATE T29581+SOLINF [Suspect]
     Indication: BREAST CANCER
     Dosage: 4 MG, UNK
     Route: 042
     Dates: start: 20100203
  2. ARIMIDEX [Suspect]
  3. HERCEPTIN [Suspect]
     Dosage: UNK
     Dates: end: 20100901
  4. RADIATION [Suspect]
  5. VITAMIN D [Concomitant]
  6. CALCIUM [Concomitant]
  7. TAXOTERE [Concomitant]
     Dosage: UNK
     Dates: end: 20100127
  8. CYTOXAN [Concomitant]
     Dosage: UNK
     Dates: end: 20100127

REACTIONS (19)
  - ASTHENIA [None]
  - ATRIAL FIBRILLATION [None]
  - BILEVEL POSITIVE AIRWAY PRESSURE [None]
  - BLOOD CREATININE INCREASED [None]
  - COUGH [None]
  - DECREASED APPETITE [None]
  - ENDOTRACHEAL INTUBATION [None]
  - EXTUBATION [None]
  - FATIGUE [None]
  - HYPERCAPNIA [None]
  - HYPONATRAEMIA [None]
  - LIVER FUNCTION TEST ABNORMAL [None]
  - LUNG INFILTRATION [None]
  - MECHANICAL VENTILATION [None]
  - PERICARDIAL EFFUSION [None]
  - PERICARDIAL EXCISION [None]
  - PLEURAL EFFUSION [None]
  - RENAL FAILURE ACUTE [None]
  - RESPIRATORY ACIDOSIS [None]
